FAERS Safety Report 21762168 (Version 1)
Quarter: 2022Q4

REPORT INFORMATION
  Report Type: Spontaneous
  Country: US (occurrence: US)
  Receive Date: 20221221
  Receipt Date: 20221221
  Transmission Date: 20230112
  Serious: Yes (Hospitalization)
  Sender: FDA-Public Use
  Company Number: US-009507513-2212USA007006

PATIENT
  Sex: Male

DRUGS (4)
  1. KEYTRUDA [Suspect]
     Active Substance: PEMBROLIZUMAB
     Dosage: 200 MILLIGRAM, Q3W
     Dates: start: 20221111
  2. LEUCOVORIN [Suspect]
     Active Substance: LEUCOVORIN
     Dosage: 636 MILLIGRAM, BIW
     Dates: start: 20221111
  3. FLUOROURACIL [Suspect]
     Active Substance: FLUOROURACIL
     Dosage: 3053 MILLIGRAM, BIW
     Dates: start: 20221111
  4. OXALIPLATIN [Suspect]
     Active Substance: OXALIPLATIN
     Dosage: 135 MILLIGRAM, BIW
     Dates: start: 20221111

REACTIONS (2)
  - Asthenia [Unknown]
  - Gait disturbance [Unknown]

NARRATIVE: CASE EVENT DATE: 20221213
